FAERS Safety Report 23165011 (Version 1)
Quarter: 2023Q4

REPORT INFORMATION
  Report Type: Spontaneous
  Country: ES (occurrence: ES)
  Receive Date: 20231109
  Receipt Date: 20231109
  Transmission Date: 20240110
  Serious: Yes (Death, Other)
  Sender: FDA-Public Use
  Company Number: ES-AMGEN-ESPSP2023196986

PATIENT

DRUGS (3)
  1. BEVACIZUMAB [Suspect]
     Active Substance: BEVACIZUMAB
     Indication: Ovarian cancer recurrent
     Dosage: UNK
     Route: 065
  2. NIRAPARIB [Concomitant]
     Active Substance: NIRAPARIB
     Dosage: 300 MILLIGRAM, QD
     Route: 065
  3. NIRAPARIB [Concomitant]
     Active Substance: NIRAPARIB
     Dosage: 200 MILLIGRAM, QD
     Route: 065

REACTIONS (6)
  - Death [Fatal]
  - Ovarian cancer recurrent [Unknown]
  - Thrombocytopenia [Unknown]
  - Anaemia [Unknown]
  - Asthenia [Unknown]
  - Toxicity to various agents [Unknown]
